FAERS Safety Report 19051212 (Version 1)
Quarter: 2021Q1

REPORT INFORMATION
  Report Type: Report from Study
  Country: JP (occurrence: JP)
  Receive Date: 20210324
  Receipt Date: 20210324
  Transmission Date: 20210420
  Serious: Yes (Other)
  Sender: FDA-Public Use
  Company Number: NVSJ2021JP004044

PATIENT
  Age: 84 Year
  Sex: Male

DRUGS (10)
  1. REVOLADE TAB [Suspect]
     Active Substance: ELTROMBOPAG OLAMINE
     Indication: APLASTIC ANAEMIA
     Dosage: 25 MG
     Route: 048
     Dates: start: 20191210, end: 20200507
  2. CONCENTRATED RED CELLS [Concomitant]
     Active Substance: HUMAN RED BLOOD CELL
     Dosage: TOTAL AMOUNT OF TRANSFUSION: 280 ML, FREQUENCY: 1/MONTH,
     Route: 065
     Dates: start: 20200204, end: 20200302
  3. CONCENTRATED RED CELLS [Concomitant]
     Active Substance: HUMAN RED BLOOD CELL
     Indication: PRODUCT USED FOR UNKNOWN INDICATION
     Dosage: TOTAL AMOUNT OF TRANSFUSION: 840 ML, FREQUENCY: 3/MONTH,
     Route: 065
     Dates: start: 20191015, end: 20191111
  4. CONCENTRATED RED CELLS [Concomitant]
     Active Substance: HUMAN RED BLOOD CELL
     Dosage: TOTAL AMOUNT OF TRANSFUSION: 560 ML, FREQUENCY: 2/MONTH,
     Route: 065
     Dates: start: 20191210, end: 20200106
  5. REVOLADE TAB [Suspect]
     Active Substance: ELTROMBOPAG OLAMINE
     Dosage: 12.5 MG
     Route: 048
     Dates: start: 20200508
  6. CONCENTRATED RED CELLS [Concomitant]
     Active Substance: HUMAN RED BLOOD CELL
     Dosage: 840 ML
     Route: 065
     Dates: start: 20191112, end: 20191209
  7. CICLOSPORIN [Concomitant]
     Active Substance: CYCLOSPORINE
     Indication: APLASTIC ANAEMIA
     Dosage: UNK
     Route: 048
     Dates: start: 20200403
  8. NEUTROGIN [Concomitant]
     Active Substance: LENOGRASTIM
     Indication: PRODUCT USED FOR UNKNOWN INDICATION
     Dosage: 250 UG
     Route: 065
     Dates: start: 20201102, end: 20201105
  9. FILGRASTIM [Concomitant]
     Active Substance: FILGRASTIM
     Indication: PRODUCT USED FOR UNKNOWN INDICATION
     Dosage: 150 UG
     Route: 065
     Dates: start: 20191106, end: 20201225
  10. CONCENTRATED RED CELLS [Concomitant]
     Active Substance: HUMAN RED BLOOD CELL
     Dosage: TOTAL AMOUNT OF TRANSFUSION: 280 ML, FREQUENCY: 1/MONTH,
     Route: 065
     Dates: start: 20200107, end: 20200203

REACTIONS (2)
  - Renal impairment [Unknown]
  - White blood cell count decreased [Unknown]
